FAERS Safety Report 20521276 (Version 3)
Quarter: 2022Q2

REPORT INFORMATION
  Report Type: Report from Study
  Country: MX (occurrence: MX)
  Receive Date: 20220226
  Receipt Date: 20220420
  Transmission Date: 20220721
  Serious: Yes (Other)
  Sender: FDA-Public Use
  Company Number: MX-NOVARTISPH-NVSC2022MX043426

PATIENT
  Age: 62 Year
  Sex: Female
  Weight: 57 kg

DRUGS (2)
  1. EXELON [Suspect]
     Active Substance: RIVASTIGMINE TARTRATE
     Indication: Nervous system disorder
     Dosage: 9.5 MG, QD PATCH 10 (CM2)
     Route: 003
     Dates: start: 202108
  2. EXELON [Suspect]
     Active Substance: RIVASTIGMINE TARTRATE
     Dosage: 1 DOSAGE FORM, QD (18MG)
     Route: 003
     Dates: start: 202110

REACTIONS (9)
  - Neoplasm [Unknown]
  - Agnosia [Recovered/Resolved]
  - Blood pressure increased [Recovered/Resolved]
  - Toothache [Unknown]
  - Headache [Recovered/Resolved]
  - Nausea [Unknown]
  - Dizziness [Recovered/Resolved]
  - Vomiting [Recovering/Resolving]
  - Off label use [Not Recovered/Not Resolved]

NARRATIVE: CASE EVENT DATE: 20210801
